FAERS Safety Report 5305806-2 (Version None)
Quarter: 2007Q2

REPORT INFORMATION
  Report Type: 
  Country: None (occurrence: None)
  Receive Date: 20070424
  Receipt Date: 20070411
  Transmission Date: 20071010
  Serious: Yes (Hospitalization)
  Sender: FDA-Public Use
  Company Number: FR-ELI_LILLY_AND_COMPANY-FR200704002507

PATIENT
  Age: 85 Year
  Sex: Female

DRUGS (8)
  1. FORTEO [Suspect]
     Indication: OSTEOPOROSIS
     Dosage: 20 UG, DAILY (1/D)
     Route: 058
     Dates: start: 20060509
  2. CARDENSIEL [Concomitant]
     Dosage: 1 D/F, DAILY (1/D)
     Route: 048
  3. PREVISCAN [Concomitant]
     Route: 048
  4. LASIX [Concomitant]
     Dosage: 20 MG, DAILY (1/D)
  5. TRIATEC [Concomitant]
     Dosage: 10 MG, DAILY (1/D)
  6. ZOCOR [Concomitant]
     Dosage: 1 D/F, DAILY (1/D)
     Route: 048
  7. HEMIGOXINE NATIVELLE [Concomitant]
     Dosage: 1 D/F, DAILY (1/D)
     Route: 048
  8. CALCIDOSE VITAMINE D [Concomitant]
     Route: 048

REACTIONS (1)
  - CARDIAC FAILURE [None]
